FAERS Safety Report 5338859-6 (Version None)
Quarter: 2007Q2

REPORT INFORMATION
  Report Type: 
  Country: None (occurrence: None)
  Receive Date: 20070530
  Receipt Date: 20070518
  Transmission Date: 20071010
  Serious: Yes (Other)
  Sender: FDA-Public Use
  Company Number: US-ELI_LILLY_AND_COMPANY-US200705003311

PATIENT
  Sex: Female
  Weight: 45.804 kg

DRUGS (3)
  1. CYMBALTA [Suspect]
     Indication: DEPRESSION
     Dosage: 60 MG, UNK
     Route: 048
     Dates: start: 20061101
  2. TRAMADOL HCL [Interacting]
     Route: 048
  3. ORTHO TRI-CYCLEN LO [Concomitant]
     Dosage: UNK, DAILY (1/D)

REACTIONS (3)
  - CONVULSION [None]
  - DRUG INTERACTION [None]
  - SUBSTANCE ABUSE [None]
